FAERS Safety Report 20070560 (Version 1)
Quarter: 2021Q4

REPORT INFORMATION
  Report Type: Spontaneous
  Country: GB (occurrence: GB)
  Receive Date: 20211115
  Receipt Date: 20211115
  Transmission Date: 20220303
  Serious: Yes (Other)
  Sender: FDA-Public Use
  Company Number: GB-REDHILL BIOPHARMA-2021RDH00199

PATIENT
  Age: 44 Year
  Sex: Female

DRUGS (7)
  1. NALOXEGOL [Suspect]
     Active Substance: NALOXEGOL
     Indication: Constipation
     Dosage: 25 MG
     Route: 048
     Dates: start: 20211101, end: 202111
  2. CARBOCYSTEINE [Concomitant]
     Active Substance: CARBOCYSTEINE
  3. CODEINE [Concomitant]
     Active Substance: CODEINE
  4. POLYETHYLENE GLYCOLS [Concomitant]
     Active Substance: POLYETHYLENE GLYCOLS
  5. MORPHINE SULFATE [Concomitant]
     Active Substance: MORPHINE SULFATE
  6. ACETAMINOPHEN [Concomitant]
     Active Substance: ACETAMINOPHEN
  7. PREGABALIN [Concomitant]
     Active Substance: PREGABALIN

REACTIONS (1)
  - Inadequate analgesia [Recovering/Resolving]

NARRATIVE: CASE EVENT DATE: 20211101
